FAERS Safety Report 8278946 (Version 2)
Quarter: 2013Q1

REPORT INFORMATION
  Report Type: Spontaneous
  Country: FR (occurrence: FR)
  Receive Date: 20111208
  Receipt Date: 20130122
  Transmission Date: 20140127
  Serious: Yes (Life-Threatening, Hospitalization)
  Sender: FDA-Public Use
  Company Number: FR-AMGEN-FRASP2011063646

PATIENT
  Age: 71 Year
  Sex: Female

DRUGS (6)
  1. ARANESP [Suspect]
     Indication: PRODUCT USED FOR UNKNOWN INDICATION
     Dosage: UNK
     Route: 048
     Dates: start: 200907
  2. CERTICAN [Suspect]
     Dosage: 3 MG, QD
     Route: 048
     Dates: start: 20110506
  3. CELLCEPT [Suspect]
     Dosage: 1.5 G, QD
     Route: 048
     Dates: start: 2007
  4. LYRICA [Suspect]
     Dosage: UNK
     Route: 048
     Dates: start: 201107
  5. PANTOPRAZOLE [Suspect]
     Route: 048
  6. KARDEGIC [Suspect]
     Dosage: UNK
     Route: 048
     Dates: start: 2007

REACTIONS (1)
  - Lung disorder [Recovering/Resolving]
